FAERS Safety Report 4680357-7 (Version None)
Quarter: 2005Q2

REPORT INFORMATION
  Report Type: 
  Country: None (occurrence: None)
  Receive Date: 20050601
  Receipt Date: 20050516
  Transmission Date: 20051028
  Serious: Yes (Disabling)
  Sender: FDA-Public Use
  Company Number: 2005RL000064

PATIENT
  Age: 84 Year
  Sex: Male

DRUGS (5)
  1. PROPAFENONE HCL [Suspect]
     Indication: VENTRICULAR EXTRASYSTOLES
     Dosage: 325 MG; QD; RTL
     Dates: start: 20041112, end: 20050406
  2. TICLOPIDINE HCL [Concomitant]
  3. TAMSULOSIN [Concomitant]
  4. HYDROCHLORIDE [Concomitant]
  5. TORASEMIDE SODIUM [Concomitant]

REACTIONS (2)
  - ACTIVITIES OF DAILY LIVING IMPAIRED [None]
  - SOMATOFORM DISORDER CARDIOVASCULAR [None]
